FAERS Safety Report 6302349-4 (Version None)
Quarter: 2009Q3

REPORT INFORMATION
  Report Type: 
  Country: None (occurrence: None)
  Receive Date: 20090810
  Receipt Date: 20090803
  Transmission Date: 20100115
  Serious: Yes (Hospitalization)
  Sender: FDA-Public Use
  Company Number: JP-EISAI INC.-E2020-04805-SPO-JP

PATIENT
  Age: 71 Year
  Sex: Male

DRUGS (4)
  1. ARICEPT [Suspect]
     Indication: DEMENTIA
     Route: 048
     Dates: start: 20090401, end: 20090420
  2. ARICEPT [Suspect]
     Route: 048
     Dates: start: 20090421, end: 20090430
  3. RISPERDAL [Concomitant]
     Indication: SCHIZOPHRENIA
     Route: 048
     Dates: start: 20071201, end: 20090730
  4. AKINETON [Concomitant]
     Indication: PROPHYLAXIS
     Route: 048
     Dates: start: 20071201, end: 20090730

REACTIONS (1)
  - RHABDOMYOLYSIS [None]
